FAERS Safety Report 13943095 (Version 1)
Quarter: 2017Q3

REPORT INFORMATION
  Report Type: Spontaneous
  Country: US (occurrence: None)
  Receive Date: 20170907
  Receipt Date: 20170907
  Transmission Date: 20171128
  Serious: No
  Sender: FDA-Public Use
  Company Number: None

PATIENT
  Sex: Male

DRUGS (2)
  1. SUTENT [Suspect]
     Active Substance: SUNITINIB MALATE
     Indication: MALIGNANT CONNECTIVE TISSUE NEOPLASM
     Dosage: DOSE - 25MG/37.5MG?FREQUENCY - 25MG DAILY FOR 5 DAYS, THEN 37.5MG
     Route: 048
     Dates: start: 20161027, end: 20170906
  2. SUTENT [Suspect]
     Active Substance: SUNITINIB MALATE
     Indication: SOFT TISSUE SARCOMA
     Dosage: DOSE - 25MG/37.5MG?FREQUENCY - 25MG DAILY FOR 5 DAYS, THEN 37.5MG
     Route: 048
     Dates: start: 20161027, end: 20170906

REACTIONS (1)
  - Therapy non-responder [None]
